FAERS Safety Report 15705771 (Version 1)
Quarter: 2018Q4

REPORT INFORMATION
  Report Type: Spontaneous
  Country: BR (occurrence: BR)
  Receive Date: 20181210
  Receipt Date: 20181210
  Transmission Date: 20190205
  Serious: Yes (Life-Threatening, Hospitalization)
  Sender: FDA-Public Use
  Company Number: BR-SAKK-2018SA334735AA

PATIENT
  Age: 18 Year
  Sex: Female

DRUGS (1)
  1. CLEXANE [Suspect]
     Active Substance: ENOXAPARIN SODIUM
     Indication: ANTICOAGULANT THERAPY
     Dosage: UNK UNK, UNK
     Route: 065

REACTIONS (4)
  - Bedridden [Not Recovered/Not Resolved]
  - Septic shock [Not Recovered/Not Resolved]
  - Exposure during pregnancy [Unknown]
  - Product use complaint [Unknown]

NARRATIVE: CASE EVENT DATE: 20181202
